FAERS Safety Report 7354155-X (Version None)
Quarter: 2011Q1

REPORT INFORMATION
  Report Type: 
  Country: None (occurrence: None)
  Receive Date: 20110316
  Receipt Date: 20110307
  Transmission Date: 20110831
  Serious: Yes (Hospitalization, Other)
  Sender: FDA-Public Use
  Company Number: AR-AMGEN-ARGSP2011007175

PATIENT
  Age: 59 Year
  Sex: Female
  Weight: 80 kg

DRUGS (7)
  1. RANITIDINE [Concomitant]
     Dosage: UNK
     Dates: start: 20070101, end: 20100901
  2. ENBREL [Suspect]
     Dosage: 50 MG, WEEKLY
     Route: 058
     Dates: start: 20101001, end: 20101201
  3. PANTOPRAZOLE [Concomitant]
     Dosage: UNK
     Route: 048
     Dates: start: 20070101
  4. CORTICOSTEROIDS [Concomitant]
     Dosage: 5 MG, UNK
     Route: 048
  5. ENBREL [Suspect]
     Indication: RHEUMATOID ARTHRITIS
     Dosage: 50 MG, WEEKLY
     Route: 058
     Dates: start: 20070101, end: 20100901
  6. AMLODIPINE [Concomitant]
     Dosage: UNK
     Route: 048
     Dates: end: 20100901
  7. ENBREL [Suspect]
     Dosage: UNK
     Dates: end: 20101101

REACTIONS (4)
  - DEHYDRATION [None]
  - URINARY TRACT INFECTION [None]
  - RENAL FAILURE [None]
  - GASTRITIS [None]
